FAERS Safety Report 8310469-8 (Version None)
Quarter: 2012Q2

REPORT INFORMATION
  Report Type: 
  Country: None (occurrence: None)
  Receive Date: 20120425
  Receipt Date: 20120410
  Transmission Date: 20120825
  Serious: Yes (Hospitalization, Other)
  Sender: FDA-Public Use
  Company Number: US-MYLANLABS-2009AC000425

PATIENT
  Sex: Female
  Weight: 58.97 kg

DRUGS (28)
  1. PREDNISONE [Concomitant]
  2. TRICOR [Concomitant]
  3. PRILOSEC [Concomitant]
  4. HUMALOG [Concomitant]
  5. LANTUS [Concomitant]
  6. AZOPT [Concomitant]
  7. INSULIN [Concomitant]
  8. SYMBICORT [Concomitant]
  9. NORVASC [Concomitant]
  10. HUMULIN /00646003/ [Concomitant]
  11. ALPHAGAN [Concomitant]
  12. CELEBREX [Concomitant]
  13. NEXIUM [Concomitant]
  14. LEVBID [Concomitant]
  15. SINGULAIR [Concomitant]
  16. LIPITOR [Concomitant]
  17. COLACE [Concomitant]
  18. BETOPTIC [Concomitant]
  19. XALATAN [Concomitant]
  20. COMBIGAN [Concomitant]
  21. DIGOXIN [Suspect]
     Indication: PALPITATIONS
     Route: 065
     Dates: start: 20000719, end: 20080131
  22. GUAIFENESIN [Concomitant]
  23. CARAC [Concomitant]
  24. NEURONTIN [Concomitant]
  25. SIMVASTATIN [Concomitant]
  26. METFORMIN HCL [Concomitant]
  27. COZAAR [Concomitant]
  28. ZYRTEC [Concomitant]

REACTIONS (109)
  - DIABETIC RETINOPATHY [None]
  - HALLUCINATION [None]
  - RENAL FAILURE [None]
  - DISEASE PROGRESSION [None]
  - BRADYARRHYTHMIA [None]
  - BURNING SENSATION [None]
  - CARDIAC MURMUR [None]
  - CATHETERISATION CARDIAC ABNORMAL [None]
  - COLITIS [None]
  - CONJUNCTIVITIS ALLERGIC [None]
  - GAIT DISTURBANCE [None]
  - IRRITABLE BOWEL SYNDROME [None]
  - MUSCLE SPASMS [None]
  - PALLOR [None]
  - PRURITUS [None]
  - SEASONAL ALLERGY [None]
  - SKIN LESION [None]
  - WHEEZING [None]
  - TYPE 1 DIABETES MELLITUS [None]
  - LOSS OF CONSCIOUSNESS [None]
  - ANAEMIA [None]
  - BALANCE DISORDER [None]
  - BUNION [None]
  - CHEST X-RAY ABNORMAL [None]
  - CONSTIPATION [None]
  - DIZZINESS [None]
  - ECHOCARDIOGRAM ABNORMAL [None]
  - GASTRITIS [None]
  - HAEMATOCHEZIA [None]
  - HERPES ZOSTER [None]
  - HYPERLIPIDAEMIA [None]
  - HYPERTENSION [None]
  - INFECTION [None]
  - MALAISE [None]
  - PRESYNCOPE [None]
  - UNRESPONSIVE TO STIMULI [None]
  - CATARACT [None]
  - CORONARY ARTERY DISEASE [None]
  - ACTINIC KERATOSIS [None]
  - ADVERSE DRUG REACTION [None]
  - BLOOD ALKALINE PHOSPHATASE INCREASED [None]
  - CHEST DISCOMFORT [None]
  - COUGH [None]
  - DERMATITIS CONTACT [None]
  - ELECTROCARDIOGRAM ABNORMAL [None]
  - ERYTHEMA [None]
  - HAEMORRHOIDS [None]
  - MUSCULOSKELETAL CHEST PAIN [None]
  - NAUSEA [None]
  - NEUROPATHY PERIPHERAL [None]
  - PAIN IN EXTREMITY [None]
  - ECONOMIC PROBLEM [None]
  - HYPOGLYCAEMIA [None]
  - DISEASE RECURRENCE [None]
  - ABSCESS LIMB [None]
  - BLEPHARITIS [None]
  - COLONIC POLYP [None]
  - DIVERTICULUM [None]
  - ENDOSCOPY ABNORMAL [None]
  - INFLAMMATION [None]
  - DRY EYE [None]
  - OEDEMA PERIPHERAL [None]
  - OPEN ANGLE GLAUCOMA [None]
  - RASH PRURITIC [None]
  - SKIN IRRITATION [None]
  - URTICARIA [None]
  - INJURY [None]
  - ACUTE PRERENAL FAILURE [None]
  - BRAIN SCAN ABNORMAL [None]
  - COGNITIVE DISORDER [None]
  - DYSPNOEA [None]
  - EMOTIONAL DISTRESS [None]
  - EPISTAXIS [None]
  - FEELING COLD [None]
  - HEADACHE [None]
  - LABORATORY TEST ABNORMAL [None]
  - MUSCULAR WEAKNESS [None]
  - OSTEOPOROSIS [None]
  - INTRAOCULAR LENS IMPLANT [None]
  - SCAB [None]
  - X-RAY LIMB ABNORMAL [None]
  - HYPERSENSITIVITY [None]
  - BRADYCARDIA [None]
  - LENTIGO [None]
  - REFUSAL OF TREATMENT BY PATIENT [None]
  - VISUAL ACUITY TESTS ABNORMAL [None]
  - SYNCOPE [None]
  - ASTHENIA [None]
  - DYSPHAGIA [None]
  - DYSPHONIA [None]
  - FATIGUE [None]
  - GASTROOESOPHAGEAL REFLUX DISEASE [None]
  - HYPOTHYROIDISM [None]
  - MYALGIA [None]
  - NODAL RHYTHM [None]
  - PAIN [None]
  - PHYSICAL EXAMINATION ABNORMAL [None]
  - SUNBURN [None]
  - VITREOUS FLOATERS [None]
  - NEUROMA [None]
  - ARRHYTHMIA [None]
  - ABSCESS DRAINAGE [None]
  - DIARRHOEA [None]
  - EXCORIATION [None]
  - FALL [None]
  - HYPERKALAEMIA [None]
  - ODYNOPHAGIA [None]
  - RESPIRATORY TRACT CONGESTION [None]
  - THROAT TIGHTNESS [None]
